FAERS Safety Report 12655837 (Version 3)
Quarter: 2016Q4

REPORT INFORMATION
  Report Type: Spontaneous
  Country: US (occurrence: US)
  Receive Date: 20160816
  Receipt Date: 20161025
  Transmission Date: 20170207
  Serious: Yes (Other)
  Sender: FDA-Public Use
  Company Number: US-PFIZER INC-2016387083

PATIENT
  Age: 40 Year
  Sex: Female
  Weight: 52.16 kg

DRUGS (6)
  1. CHANTIX [Suspect]
     Active Substance: VARENICLINE TARTRATE
     Dosage: 1 DF, 1X/DAY
     Route: 048
     Dates: start: 20160722, end: 20160805
  2. ADVAIR HFA [Concomitant]
     Active Substance: FLUTICASONE PROPIONATE\SALMETEROL XINAFOATE
     Indication: CHRONIC OBSTRUCTIVE PULMONARY DISEASE
     Dosage: UNK, 2X/DAY (1 PUFF BID FLUTICASONE PROPIONATE 250 MG, SALMETEROL XINAFOATE 5MG)
  3. SYNTHROID [Concomitant]
     Active Substance: LEVOTHYROXINE SODIUM
     Indication: HYPOTHYROIDISM
     Dosage: 75 MG, 1X/DAY
     Route: 048
     Dates: start: 20101101
  4. CHANTIX [Suspect]
     Active Substance: VARENICLINE TARTRATE
     Indication: SMOKING CESSATION THERAPY
     Dosage: 1 MG, 2X/DAY
     Route: 048
     Dates: start: 20160724, end: 20160809
  5. SYNTHROID [Concomitant]
     Active Substance: LEVOTHYROXINE SODIUM
     Dosage: 75 UG, 1X/DAY
  6. MOBIC [Concomitant]
     Active Substance: MELOXICAM
     Indication: MYALGIA
     Dosage: 15 MG, 1X/DAY

REACTIONS (11)
  - Depression [Recovered/Resolved]
  - Abdominal distension [Not Recovered/Not Resolved]
  - Hypoaesthesia [Not Recovered/Not Resolved]
  - Musculoskeletal pain [Not Recovered/Not Resolved]
  - Condition aggravated [Unknown]
  - Constipation [Not Recovered/Not Resolved]
  - Peripheral swelling [Unknown]
  - Nightmare [Recovered/Resolved]
  - Anxiety [Unknown]
  - Paraesthesia [Not Recovered/Not Resolved]
  - Headache [Not Recovered/Not Resolved]

NARRATIVE: CASE EVENT DATE: 20160804
